FAERS Safety Report 8935276 (Version 2)
Quarter: 2013Q1

REPORT INFORMATION
  Report Type: Spontaneous
  Country: FR (occurrence: FR)
  Receive Date: 20121129
  Receipt Date: 20130123
  Transmission Date: 20140127
  Serious: Yes (Hospitalization)
  Sender: FDA-Public Use
  Company Number: FR-B.I. PHARMACEUTICALS,INC./RIDGEFIELD-2012-FF-01753FF

PATIENT
  Age: 83 Year
  Sex: Female

DRUGS (3)
  1. PRADAXA [Suspect]
     Indication: ATRIAL FIBRILLATION
     Dosage: 220 MG
     Route: 048
  2. PRADAXA [Suspect]
     Indication: ARRHYTHMIA
  3. FLECAINE [Suspect]
     Route: 048
     Dates: end: 20121114

REACTIONS (1)
  - Transient ischaemic attack [Not Recovered/Not Resolved]
